FAERS Safety Report 10283828 (Version 2)
Quarter: 2014Q3

REPORT INFORMATION
  Report Type: Report from Study
  Country: HR (occurrence: HR)
  Receive Date: 20140708
  Receipt Date: 20140731
  Transmission Date: 20150326
  Serious: Yes (Other)
  Sender: FDA-Public Use
  Company Number: HR-ASTELLAS-2014EU009281

PATIENT

DRUGS (19)
  1. TACROLIMUS. [Suspect]
     Active Substance: TACROLIMUS
     Dosage: VISIT 4, DAILY DOSE 4 MG, FREQUENCY TWICE DAILY
     Route: 048
     Dates: start: 20130309
  2. CELLCEPT [Suspect]
     Active Substance: MYCOPHENOLATE MOFETIL\MYCOPHENOLATE MOFETIL HYDROCHLORIDE
     Indication: IMMUNOSUPPRESSION
     Dosage: FIRST VISIT, 3000 MG, ONCE DAILY
     Route: 065
     Dates: start: 20130309
  3. CELLCEPT [Suspect]
     Active Substance: MYCOPHENOLATE MOFETIL\MYCOPHENOLATE MOFETIL HYDROCHLORIDE
     Dosage: VISIT 5, 2000 MG, ONCE DAILY
     Route: 065
     Dates: start: 20130309
  4. TACROLIMUS. [Suspect]
     Active Substance: TACROLIMUS
     Dosage: VISIT 2, DAILY DOSE 4 MG, FREQUENCY TWICE DAILY
     Route: 048
     Dates: start: 20130309
  5. TACROLIMUS. [Suspect]
     Active Substance: TACROLIMUS
     Dosage: VISIT 3, DAILY DOSE 4 MG, FREQUENCY TWICE DAILY
     Route: 048
     Dates: start: 20130309
  6. TACROLIMUS. [Suspect]
     Active Substance: TACROLIMUS
     Dosage: END OF VISIT, DAILY DOSE 3 MG, TWICE DAILY
     Route: 048
     Dates: start: 20130309
  7. CELLCEPT [Suspect]
     Active Substance: MYCOPHENOLATE MOFETIL\MYCOPHENOLATE MOFETIL HYDROCHLORIDE
     Dosage: VISIT 4, 2000 MG, ONCE DAILY
     Route: 065
     Dates: start: 20130309
  8. CELLCEPT [Suspect]
     Active Substance: MYCOPHENOLATE MOFETIL\MYCOPHENOLATE MOFETIL HYDROCHLORIDE
     Dosage: VISIT 3, 2000 MG, ONCE DAILY
     Route: 065
     Dates: start: 20130309
  9. ALDIZEM                            /00489701/ [Concomitant]
     Indication: HYPERTENSION
     Route: 048
     Dates: start: 2013
  10. DECORTIN [Concomitant]
     Active Substance: PREDNISONE
     Indication: PRODUCT USED FOR UNKNOWN INDICATION
     Route: 065
     Dates: start: 20130309
  11. CELLCEPT [Suspect]
     Active Substance: MYCOPHENOLATE MOFETIL\MYCOPHENOLATE MOFETIL HYDROCHLORIDE
     Dosage: VISIT 2, 2750 MG, ONCE DAILY
     Route: 065
     Dates: start: 20130309
  12. DECORTIN [Concomitant]
     Active Substance: PREDNISONE
     Route: 065
     Dates: start: 20130309
  13. TACROLIMUS. [Suspect]
     Active Substance: TACROLIMUS
     Indication: IMMUNOSUPPRESSION
     Dosage: FIRST VISIT, DAILY DOSE 4 MG, FREQUENCY TWICE DAILY
     Route: 048
     Dates: start: 20130309
  14. CELLCEPT [Suspect]
     Active Substance: MYCOPHENOLATE MOFETIL\MYCOPHENOLATE MOFETIL HYDROCHLORIDE
     Dosage: END OF STUDY VISIT, 2000 MG, ONCE DAILY
     Route: 065
     Dates: start: 20130309
  15. MARTEFARIN [Concomitant]
     Active Substance: WARFARIN
     Indication: THROMBOSIS PROPHYLAXIS
     Route: 048
  16. ASACOL [Concomitant]
     Active Substance: MESALAMINE
     Indication: ANTIINFLAMMATORY THERAPY
     Route: 048
     Dates: start: 2013
  17. DECORTIN [Concomitant]
     Active Substance: PREDNISONE
     Route: 065
     Dates: start: 20130309
  18. SINERSUL [Concomitant]
     Active Substance: SULFAMETHOXAZOLE\TRIMETHOPRIM
     Indication: INFECTION PROPHYLAXIS
     Route: 048
     Dates: start: 2013
  19. TACROLIMUS. [Suspect]
     Active Substance: TACROLIMUS
     Dosage: VISIT 5, DAILY DOSE 3 MG, FREQUENCY TWICE DAILY
     Route: 048
     Dates: start: 20130309

REACTIONS (1)
  - Crohn^s disease [Recovering/Resolving]

NARRATIVE: CASE EVENT DATE: 20131025
